FAERS Safety Report 6232052-0 (Version None)
Quarter: 2009Q2

REPORT INFORMATION
  Report Type: 
  Country: None (occurrence: None)
  Receive Date: 20090612
  Receipt Date: 20090602
  Transmission Date: 20091009
  Serious: Yes (Other)
  Sender: FDA-Public Use
  Company Number: ESP09000072

PATIENT
  Sex: Female

DRUGS (1)
  1. RISEDRONATE SODIUM [Suspect]
     Dosage: 35 MG

REACTIONS (4)
  - MYALGIA [None]
  - MYOPATHY [None]
  - OPTIC NEURITIS [None]
  - VISUAL ACUITY REDUCED [None]
